FAERS Safety Report 6024469-4 (Version None)
Quarter: 2008Q4

REPORT INFORMATION
  Report Type: 
  Country: None (occurrence: None)
  Receive Date: 20081231
  Receipt Date: 20080926
  Transmission Date: 20090506
  Serious: No
  Sender: FDA-Public Use
  Company Number: US-BRISTOL-MYERS SQUIBB COMPANY-14291058

PATIENT
  Age: 72 Year
  Sex: Female

DRUGS (3)
  1. ORENCIA [Suspect]
     Indication: RHEUMATOID ARTHRITIS
     Dosage: TWO INFUSIONS. TEMPORARILY STOPPED
     Route: 042
     Dates: start: 20080701
  2. METHOTREXATE [Concomitant]
     Dosage: 1DF=12.5 UNITS NOT SPECIFIED.
  3. PREDNISONE [Concomitant]

REACTIONS (1)
  - HERPES ZOSTER [None]
